FAERS Safety Report 15569499 (Version 1)
Quarter: 2018Q4

REPORT INFORMATION
  Report Type: Report from Study
  Country: DE (occurrence: DE)
  Receive Date: 20181031
  Receipt Date: 20181031
  Transmission Date: 20190205
  Serious: Yes (Hospitalization, Other)
  Sender: FDA-Public Use
  Company Number: DE-ADIENNEP-2018AD000530

PATIENT
  Age: 7 Year
  Sex: Male
  Weight: 18 kg

DRUGS (3)
  1. TREOSULFAN MEDAC [Suspect]
     Active Substance: TREOSULFAN
     Dosage: 8.75 G DAILY
     Route: 042
     Dates: start: 20180724, end: 20180726
  2. FLUDARABINE [Suspect]
     Active Substance: FLUDARABINE PHOSPHATE
     Dosage: 22 MG DAILY
     Route: 042
     Dates: start: 20180722, end: 20180727
  3. THIOTEPA. [Suspect]
     Active Substance: THIOTEPA
     Dosage: 170 MG DAILY
     Route: 042
     Dates: start: 20180728

REACTIONS (3)
  - Respiratory tract infection [Recovered/Resolved]
  - Abdominal pain upper [Recovered/Resolved]
  - Decreased appetite [Recovered/Resolved]

NARRATIVE: CASE EVENT DATE: 20181013
